FAERS Safety Report 8002171-7 (Version None)
Quarter: 2011Q4

REPORT INFORMATION
  Report Type: 
  Country: None (occurrence: None)
  Receive Date: 20111222
  Receipt Date: 20110804
  Transmission Date: 20120403
  Serious: No
  Sender: FDA-Public Use
  Company Number: US-GLAXOSMITHKLINE-A0750411A

PATIENT
  Age: 71 Year
  Sex: Female

DRUGS (2)
  1. NICOTINE POLACRILEX [Suspect]
     Indication: EX-TOBACCO USER
  2. NICORETTE [Suspect]
     Indication: NICOTINE DEPENDENCE
     Route: 002

REACTIONS (9)
  - TOOTH DISORDER [None]
  - DENTAL CARIES [None]
  - TOOTH REPAIR [None]
  - NICOTINE DEPENDENCE [None]
  - DEPRESSION [None]
  - TOOTH INJURY [None]
  - PAIN [None]
  - INTENTIONAL DRUG MISUSE [None]
  - GINGIVITIS [None]
